FAERS Safety Report 14179113 (Version 1)
Quarter: 2017Q4

REPORT INFORMATION
  Report Type: Report from Study
  Country: US (occurrence: US)
  Receive Date: 20171110
  Receipt Date: 20171110
  Transmission Date: 20180321
  Serious: Yes (Hospitalization, Other)
  Sender: FDA-Public Use
  Company Number: US-AMNEAL PHARMACEUTICALS-2017AMN00764

PATIENT
  Sex: Male
  Weight: 29.48 kg

DRUGS (1)
  1. OXCARBAZEPINE. [Suspect]
     Active Substance: OXCARBAZEPINE
     Indication: EPILEPSY
     Dosage: UNK, 2X/DAY
     Route: 048
     Dates: start: 201706, end: 201707

REACTIONS (10)
  - Vomiting [Recovered/Resolved]
  - Throat irritation [Recovered/Resolved]
  - Condition aggravated [Recovered/Resolved]
  - Aura [Recovered/Resolved]
  - Retching [Recovered/Resolved]
  - Product odour abnormal [Unknown]
  - Product substitution issue [Unknown]
  - Product quality issue [Unknown]
  - Nausea [Recovered/Resolved]
  - Seizure [Recovered/Resolved]
